FAERS Safety Report 7897519-8 (Version None)
Quarter: 2011Q4

REPORT INFORMATION
  Report Type: 
  Country: None (occurrence: None)
  Receive Date: 20111107
  Receipt Date: 20111103
  Transmission Date: 20120403
  Serious: Yes (Hospitalization, Other)
  Sender: FDA-Public Use
  Company Number: US-PFIZER INC-2011269753

PATIENT
  Sex: Male

DRUGS (3)
  1. LIDOCAINE [Suspect]
     Indication: ARTHRALGIA
     Dosage: UNK
     Route: 014
     Dates: start: 20111029, end: 20111029
  2. DEPO-MEDROL [Suspect]
     Indication: ARTHRALGIA
     Dosage: 80 MG, UNK
     Route: 014
     Dates: start: 20111029, end: 20111029
  3. DEXAMETHASONE [Suspect]
     Indication: ARTHRALGIA
     Dosage: 4 MG, UNK
     Route: 014
     Dates: start: 20111029, end: 20111029

REACTIONS (2)
  - INFECTION [None]
  - ARTHRITIS BACTERIAL [None]
